FAERS Safety Report 8248769-2 (Version None)
Quarter: 2012Q1

REPORT INFORMATION
  Report Type: 
  Country: None (occurrence: None)
  Receive Date: 20120331
  Receipt Date: 20120329
  Transmission Date: 20120608
  Serious: Yes (Other)
  Sender: FDA-Public Use
  Company Number: PHHY2012AU022108

PATIENT
  Sex: Female

DRUGS (4)
  1. ZANTAC [Concomitant]
     Indication: GASTROOESOPHAGEAL REFLUX DISEASE
     Dosage: 300 MG, QD
  2. LERCANIDIPINE [Concomitant]
     Indication: HYPERTENSION
     Dosage: 10 MG, UNK
     Route: 048
     Dates: start: 20050101
  3. ZOLEDRONOC ACID [Suspect]
     Indication: OSTEOPOROSIS
     Dosage: 5 MG, UNK
     Route: 042
     Dates: start: 20110420
  4. PERINDOPRIL ERBUMINE [Concomitant]
     Indication: HYPERTENSION
     Dosage: 5 MG, BID
     Route: 048
     Dates: start: 20040101

REACTIONS (7)
  - GINGIVAL ULCERATION [None]
  - SWOLLEN TONGUE [None]
  - PALPITATIONS [None]
  - HEART RATE IRREGULAR [None]
  - GINGIVAL BLEEDING [None]
  - FEELING ABNORMAL [None]
  - GINGIVAL INFECTION [None]
